FAERS Safety Report 18693681 (Version 1)
Quarter: 2021Q1

REPORT INFORMATION
  Report Type: Spontaneous
  Country: US (occurrence: US)
  Receive Date: 20210104
  Receipt Date: 20210104
  Transmission Date: 20210419
  Serious: Yes (Death, Disabling, Other)
  Sender: FDA-Public Use
  Company Number: US-SA-2020SA378048

PATIENT

DRUGS (1)
  1. GOLD BOND ORIGINAL STRENGTH POWDER [Suspect]
     Active Substance: MENTHOL\ZINC OXIDE
     Dosage: UNK

REACTIONS (7)
  - Anxiety [Unknown]
  - Metastases to pleura [Fatal]
  - Injury [Unknown]
  - Metastases to adrenals [Fatal]
  - Mesothelioma [Fatal]
  - Exposure to chemical pollution [Fatal]
  - Pain [Unknown]

NARRATIVE: CASE EVENT DATE: 201807
